FAERS Safety Report 6432495-6 (Version None)
Quarter: 2009Q4

REPORT INFORMATION
  Report Type: 
  Country: None (occurrence: None)
  Receive Date: 20091109
  Receipt Date: 20091103
  Transmission Date: 20100525
  Serious: Yes (Other)
  Sender: FDA-Public Use
  Company Number: IT-BAYER-200928659GPV

PATIENT
  Age: 59 Year
  Sex: Male
  Weight: 82 kg

DRUGS (9)
  1. SORAFENIB [Suspect]
     Indication: HEPATIC NEOPLASM MALIGNANT
     Dosage: TOTAL DAILY DOSE: 800 MG
     Route: 048
     Dates: start: 20090604, end: 20090806
  2. SORAFENIB [Suspect]
     Dosage: TOTAL DAILY DOSE: 800 MG
     Route: 048
     Dates: start: 20090813
  3. DOXORUBICIN HCL [Suspect]
     Indication: HEPATIC NEOPLASM MALIGNANT
  4. HYDRATATIVE CREAM [Concomitant]
     Indication: PALMAR-PLANTAR ERYTHRODYSAESTHESIA SYNDROME
     Dates: start: 20090806
  5. PARACETAMOL [Concomitant]
     Indication: PYREXIA
     Route: 048
     Dates: start: 20090620, end: 20090730
  6. AMPICILLIN [Concomitant]
     Indication: THERAPEUTIC EMBOLISATION
     Route: 048
     Dates: start: 20090811, end: 20090811
  7. LOSEC [Concomitant]
     Indication: THERAPEUTIC EMBOLISATION
     Route: 048
     Dates: start: 20090810
  8. MAGNESIUM SULFATE [Concomitant]
     Indication: HYPOMAGNESAEMIA
     Route: 042
     Dates: start: 20090811, end: 20090811
  9. SODIUM FRUCTOSE 1-6 DIPHOSPHATE [Concomitant]
     Indication: HYPOMAGNESAEMIA
     Route: 042
     Dates: start: 20090812, end: 20090812

REACTIONS (1)
  - ATRIAL FIBRILLATION [None]
